FAERS Safety Report 5700661-0 (Version None)
Quarter: 2008Q2

REPORT INFORMATION
  Report Type: 
  Country: None (occurrence: None)
  Receive Date: 20080409
  Receipt Date: 20080409
  Transmission Date: 20081010
  Serious: Yes (Hospitalization, Other)
  Sender: FDA-Public Use
  Company Number: None

PATIENT
  Age: 79 Year
  Sex: Male

DRUGS (11)
  1. GABAPENTIN [Suspect]
     Indication: NEURALGIA
     Dosage: 300MG TID PO
     Route: 048
     Dates: start: 20070628, end: 20070701
  2. FUROSEMIDE [Concomitant]
  3. NEPHROCAPS [Concomitant]
  4. SIMVASTATIN [Concomitant]
  5. FELODIPINE [Concomitant]
  6. METOPROLOL TARTRATE [Concomitant]
  7. LOSARTAN POTASSIUM [Concomitant]
  8. SEVELAMAR [Concomitant]
  9. PIPERACILLIN AND TAZOBACTAM [Concomitant]
  10. VANCOMYCIN [Concomitant]
  11. INSULIN SLIDING SCALE [Concomitant]

REACTIONS (4)
  - CONVULSION [None]
  - MYOCLONUS [None]
  - SPEECH DISORDER [None]
  - TREMOR [None]
